FAERS Safety Report 24641841 (Version 9)
Quarter: 2025Q1

REPORT INFORMATION
  Report Type: Spontaneous
  Country: US (occurrence: US)
  Receive Date: 20241120
  Receipt Date: 20250318
  Transmission Date: 20250409
  Serious: No
  Sender: PFIZER
  Company Number: US-PFIZER INC-202400025248

PATIENT
  Age: 13 Year
  Sex: Male
  Weight: 53.333 kg

DRUGS (5)
  1. GENOTROPIN [Suspect]
     Active Substance: SOMATROPIN
     Indication: Short stature
     Dosage: 1.6 MG, ALTERNATE DAY (ALTERNATE 1.6 MG AND 1.8 MG, 7 DAYS PER WEEK)
     Route: 058
     Dates: start: 20240224
  2. GENOTROPIN [Suspect]
     Active Substance: SOMATROPIN
     Dosage: 1.8 MG, ALTERNATE DAY (ALTERNATE 1.6 MG AND 1.8 MG, 7 DAYS PER WEEK)
     Route: 058
     Dates: start: 20240224
  3. GENOTROPIN [Suspect]
     Active Substance: SOMATROPIN
     Dosage: 2 MG, 1X/DAY
  4. GENOTROPIN [Suspect]
     Active Substance: SOMATROPIN
  5. ANASTROZOLE [Concomitant]
     Active Substance: ANASTROZOLE
     Indication: Short stature
     Dosage: 1 MILLIGRAMS ONE TABLET A DAY

REACTIONS (3)
  - Device leakage [Unknown]
  - Drug dose omission by device [Unknown]
  - Product prescribing error [Unknown]

NARRATIVE: CASE EVENT DATE: 20240101
